FAERS Safety Report 16116599 (Version 2)
Quarter: 2019Q3

REPORT INFORMATION
  Report Type: Spontaneous
  Country: IT (occurrence: IT)
  Receive Date: 20190326
  Receipt Date: 20190708
  Transmission Date: 20191004
  Serious: Yes (Death, Life-Threatening, Hospitalization, Other)
  Sender: FDA-Public Use
  Company Number: IT-ACCORD-042172

PATIENT
  Age: 60 Year
  Sex: Male

DRUGS (5)
  1. BLEOMYCIN [Concomitant]
     Active Substance: BLEOMYCIN SULFATE
     Indication: HODGKIN^S DISEASE
     Dosage: RECEIVED 1ST CYCLE AS ABVD REGIMEN, 17 MG IN SF 100 CC IN 30
  2. DOXORUBICIN [Suspect]
     Active Substance: DOXORUBICIN
     Indication: HODGKIN^S DISEASE
     Dosage: RECEIVED 1ST CYCLE AS ABVD REGIMEN, 42 MG IN SF 100CC IN 30
     Route: 065
  3. VINBLASTINE [Concomitant]
     Active Substance: VINBLASTINE
     Indication: HODGKIN^S DISEASE
     Dosage: RECEIVED 1ST CYCLE AS ABVD REGIMEN, 10.2 MG IN PUSH
  4. DACARBAZINE/DACARBAZINE CITRATE [Concomitant]
     Indication: HODGKIN^S DISEASE
     Dosage: RECEIVED 1ST CYCLE AS ABVD REGIMEN, 637 MG IN SF 250CC IN 60
  5. BENDAMUSTINE/BENDAMUSTINE HYDROCHLORIDE [Suspect]
     Active Substance: BENDAMUSTINE HYDROCHLORIDE
     Indication: HODGKIN^S DISEASE
     Dosage: CYCLIC
     Route: 042

REACTIONS (3)
  - Septic shock [Fatal]
  - Left ventricular dysfunction [Recovered/Resolved]
  - Cardiogenic shock [Recovered/Resolved]
